FAERS Safety Report 9640277 (Version 1)
Quarter: 2013Q4

REPORT INFORMATION
  Report Type: Spontaneous
  Country: IT (occurrence: IT)
  Receive Date: 20131023
  Receipt Date: 20131023
  Transmission Date: 20140711
  Serious: Yes (Other)
  Sender: FDA-Public Use
  Company Number: IT-RANBAXY-2013US-74501

PATIENT
  Age: 81 Year
  Sex: Female

DRUGS (1)
  1. PANTOPRAZOLE [Suspect]
     Indication: PRODUCT USED FOR UNKNOWN INDICATION
     Dosage: UNK
     Route: 065

REACTIONS (4)
  - Delirium [Recovered/Resolved]
  - Hypomagnesaemia [Recovered/Resolved]
  - Electrocardiogram QT prolonged [Recovered/Resolved]
  - Supraventricular tachycardia [Recovered/Resolved]
